FAERS Safety Report 16678633 (Version 2)
Quarter: 2019Q3

REPORT INFORMATION
  Report Type: Report from Study
  Country: US (occurrence: US)
  Receive Date: 20190807
  Receipt Date: 20190819
  Transmission Date: 20191004
  Serious: Yes (Hospitalization, Other)
  Sender: FDA-Public Use
  Company Number: US-GILEAD-2019-0422292

PATIENT
  Age: 14 Year
  Sex: Female

DRUGS (12)
  1. CULTURELLE [Concomitant]
     Active Substance: LACTOBACILLUS RHAMNOSUS
  2. LEVAQUIN [Concomitant]
     Active Substance: LEVOFLOXACIN
  3. AZTREONAM LYSINE [Suspect]
     Active Substance: AZTREONAM LYSINE
     Indication: CYSTIC FIBROSIS
     Dosage: 75 MG, TID
     Dates: start: 20140815
  4. PHYTONADIONE. [Concomitant]
     Active Substance: PHYTONADIONE
  5. ORKAMBI [Concomitant]
     Active Substance: IVACAFTOR\LUMACAFTOR
  6. SODIUM CHLORIDE. [Concomitant]
     Active Substance: SODIUM CHLORIDE
  7. COMPLETE [CHLORHEXIDINE] [Concomitant]
  8. PULMOZYME [Concomitant]
     Active Substance: DORNASE ALFA
  9. FLOVENT [Concomitant]
     Active Substance: FLUTICASONE PROPIONATE
  10. AZITHROMYCIN ANHYDROUS. [Concomitant]
     Active Substance: AZITHROMYCIN ANHYDROUS
  11. VITAMIN D 2000 [Concomitant]
     Active Substance: VITAMIN D NOS
  12. ALBUTEROL [SALBUTAMOL] [Concomitant]
     Active Substance: ALBUTEROL

REACTIONS (2)
  - Cystic fibrosis [Not Recovered/Not Resolved]
  - Cystic fibrosis [Unknown]

NARRATIVE: CASE EVENT DATE: 20190726
